FAERS Safety Report 4787792-7 (Version None)
Quarter: 2005Q4

REPORT INFORMATION
  Report Type: 
  Country: None (occurrence: None)
  Receive Date: 20051004
  Receipt Date: 20021015
  Transmission Date: 20060501
  Serious: Yes (Other)
  Sender: FDA-Public Use
  Company Number: US-MERCK-0210USA01628

PATIENT
  Age: 71 Year
  Sex: Female

DRUGS (6)
  1. VIOXX [Suspect]
     Route: 048
     Dates: start: 20020601
  2. [THERAPY UNSPECIFIED] [Concomitant]
     Route: 065
     Dates: start: 20020601
  3. PLAVIX [Concomitant]
     Route: 065
     Dates: start: 20020601
  4. ISO-BID [Concomitant]
     Route: 065
     Dates: start: 20020901
  5. COZAAR [Concomitant]
     Route: 048
     Dates: start: 20020601
  6. METOPROLOL [Concomitant]
     Route: 065

REACTIONS (2)
  - HAEMORRHAGE [None]
  - MYOCARDIAL INFARCTION [None]
